FAERS Safety Report 21843536 (Version 1)
Quarter: 2023Q1

REPORT INFORMATION
  Report Type: Spontaneous
  Country: US (occurrence: US)
  Receive Date: 20230110
  Receipt Date: 20230110
  Transmission Date: 20230417
  Serious: Yes (Hospitalization)
  Sender: FDA-Public Use
  Company Number: US-BIOVITRUM-2023US00498

PATIENT
  Sex: Female

DRUGS (2)
  1. SYNAGIS [Suspect]
     Active Substance: PALIVIZUMAB
     Indication: Congenital cardiovascular anomaly
     Dates: start: 202203
  2. SYNAGIS [Suspect]
     Active Substance: PALIVIZUMAB
     Dates: start: 202211

REACTIONS (1)
  - Respiratory syncytial virus infection [Unknown]
